FAERS Safety Report 22616780 (Version 1)
Quarter: 2023Q2

REPORT INFORMATION
  Report Type: Spontaneous
  Country: CA (occurrence: CA)
  Receive Date: 20230619
  Receipt Date: 20230619
  Transmission Date: 20230721
  Serious: Yes (Hospitalization, Disabling, Other)
  Sender: FDA-Public Use
  Company Number: CA-HLS-202301440

PATIENT
  Age: 34 Year
  Sex: Male

DRUGS (7)
  1. ACETAMINOPHEN [Concomitant]
     Active Substance: ACETAMINOPHEN
     Dosage: NOT SPECIFIED DOSAGE FORM
     Route: 065
  2. CLOZAPINE [Suspect]
     Active Substance: CLOZAPINE
     Indication: Acute psychosis
     Dosage: TABLETS DOSAGE FORM
     Route: 048
  3. HALDOL [Concomitant]
     Active Substance: HALOPERIDOL
     Dosage: NOT SPECIFIED DOSAGE FORM
     Route: 065
  4. IBUPROFEN [Concomitant]
     Active Substance: IBUPROFEN
     Dosage: NOT SPECIFIED DOSAGE FORM
     Route: 065
  5. OLANZAPINE [Concomitant]
     Active Substance: OLANZAPINE
     Dosage: NOT SPECIFIED DOSAGE FORM
     Route: 065
  6. QUETIAPINE [Concomitant]
     Active Substance: QUETIAPINE
     Dosage: TABLETS DOSAGE FORM
     Route: 065
  7. TRAZODONE [Suspect]
     Active Substance: TRAZODONE HYDROCHLORIDE
     Indication: Agitation
     Dosage: AMOUNT: 50 MILLIGRAM?TABLETS DOSAGE FORM
     Route: 048

REACTIONS (9)
  - Aggression [None]
  - Agitation [None]
  - Back pain [None]
  - Confusional state [None]
  - Dry mouth [None]
  - Musculoskeletal stiffness [None]
  - Peripheral swelling [None]
  - Restlessness [None]
  - Vision blurred [None]
